FAERS Safety Report 7345842-8 (Version None)
Quarter: 2011Q1

REPORT INFORMATION
  Report Type: 
  Country: None (occurrence: None)
  Receive Date: 20110311
  Receipt Date: 20110303
  Transmission Date: 20110831
  Serious: No
  Sender: FDA-Public Use
  Company Number: US-BIOGENIDEC-2010BI013579

PATIENT
  Age: 52 Year
  Sex: Female

DRUGS (1)
  1. TYSABRI [Suspect]
     Indication: MULTIPLE SCLEROSIS
     Route: 042
     Dates: start: 20100406

REACTIONS (15)
  - DEPRESSION [None]
  - VISION BLURRED [None]
  - MEMORY IMPAIRMENT [None]
  - URINARY RETENTION [None]
  - MOBILITY DECREASED [None]
  - APHASIA [None]
  - HEADACHE [None]
  - INSOMNIA [None]
  - MUSCLE TWITCHING [None]
  - WEIGHT INCREASED [None]
  - VAGINAL INFECTION [None]
  - FIBROMYALGIA [None]
  - ARTHRALGIA [None]
  - NECK PAIN [None]
  - FEELING HOT [None]
